FAERS Safety Report 9219901 (Version 2)
Quarter: 2013Q2

REPORT INFORMATION
  Report Type: Spontaneous
  Country: JP (occurrence: None)
  Receive Date: 20130405
  Receipt Date: 20130514
  Transmission Date: 20140414
  Serious: Yes (Death)
  Sender: FDA-Public Use
  Company Number: JP-20130024

PATIENT
  Age: 7 Decade
  Sex: Male

DRUGS (3)
  1. LIPIODOL ULTRA FLUIDE (ETHIODIZED OIL), UNKNOWN [Suspect]
     Indication: THERAPEUTIC EMBOLISATION
     Route: 013
  2. FARMORUBICIN [Suspect]
     Indication: THERAPEUTIC EMBOLISATION
     Route: 013
  3. GELPART [Suspect]
     Indication: THERAPEUTIC EMBOLISATION
     Route: 013

REACTIONS (7)
  - Liver abscess [None]
  - Clostridial infection [None]
  - Septic shock [None]
  - Haemolysis [None]
  - Hyperventilation [None]
  - Restlessness [None]
  - Off label use [None]
